FAERS Safety Report 15626081 (Version 2)
Quarter: 2018Q4

REPORT INFORMATION
  Report Type: Report from Study
  Country: UG (occurrence: UG)
  Receive Date: 20181116
  Receipt Date: 20181129
  Transmission Date: 20190205
  Serious: Yes (Hospitalization, Congenital Anomaly, Other)
  Sender: FDA-Public Use
  Company Number: UG-VIIV HEALTHCARE LIMITED-UG2018GSK194748

PATIENT
  Age: 0 Day
  Sex: Male
  Weight: 4 kg

DRUGS (11)
  1. DOLUTEGRAVIR [Suspect]
     Active Substance: DOLUTEGRAVIR
     Indication: HIV INFECTION
     Dosage: 50 MG, QD
     Route: 064
     Dates: start: 20180809
  2. AMPICILLIN [Concomitant]
     Active Substance: AMPICILLIN
     Dosage: 180 DF, SINGLE
     Dates: start: 20180927, end: 20180927
  3. NEVIRAPINE. [Concomitant]
     Active Substance: NEVIRAPINE
     Dosage: 1.5 ML, UNK
     Dates: start: 20180926
  4. LAMIVUDINE + TENOFOVIR DISOPROXIL FUMARATE [Concomitant]
     Active Substance: LAMIVUDINE\TENOFOVIR DISOPROXIL FUMARATE
     Dosage: UNK
     Route: 064
     Dates: start: 20180809
  5. DEXTROSE 10% [Concomitant]
     Active Substance: DEXTROSE
     Dosage: 7.2 ML, SINGLE
     Dates: start: 20180927, end: 20180927
  6. GENTAMICIN. [Concomitant]
     Active Substance: GENTAMICIN
     Dosage: 18 MG, UNK
     Route: 042
     Dates: start: 20180927, end: 20181002
  7. CEFOTAXIME [Concomitant]
     Active Substance: CEFOTAXIME SODIUM
     Dosage: UNK
     Route: 042
     Dates: start: 20180927, end: 20181002
  8. NORMAL SALINE [Concomitant]
     Active Substance: SODIUM CHLORIDE
     Dosage: 36 ML, SINGLE
     Route: 042
  9. VITAMIN K [Concomitant]
     Active Substance: PHYTONADIONE
     Dosage: 1 MG, SINGLE
     Route: 030
     Dates: start: 20180927, end: 20180927
  10. CEFIXIME. [Concomitant]
     Active Substance: CEFIXIME
     Dosage: 40 MG (SYRUP), UNK
     Dates: start: 20181002, end: 20181007
  11. GLYCEROL SUPPOSITORY [Concomitant]
     Dosage: 1 G, UNK
     Dates: start: 20181108

REACTIONS (4)
  - Congenital skin dimples [Not Recovered/Not Resolved]
  - Sepsis neonatal [Unknown]
  - Birth mark [Not Recovered/Not Resolved]
  - Umbilical hernia [Recovered/Resolved]

NARRATIVE: CASE EVENT DATE: 20180925
